FAERS Safety Report 7545285-8 (Version None)
Quarter: 2011Q2

REPORT INFORMATION
  Report Type: 
  Country: None (occurrence: None)
  Receive Date: 20110614
  Receipt Date: 20110605
  Transmission Date: 20111010
  Serious: Yes (Other)
  Sender: FDA-Public Use
  Company Number: IT-JNJFOC-20110604041

PATIENT
  Age: 56 Year
  Sex: Male

DRUGS (4)
  1. CHLORPROMAZINE HCL [Suspect]
     Indication: SELF INJURIOUS BEHAVIOUR
     Route: 048
  2. AKINETON [Suspect]
     Indication: SELF INJURIOUS BEHAVIOUR
     Route: 065
  3. HALDOL [Suspect]
     Indication: SELF INJURIOUS BEHAVIOUR
     Route: 048
  4. DIAZEPAM [Suspect]
     Indication: SELF INJURIOUS BEHAVIOUR
     Route: 048

REACTIONS (1)
  - SELF INJURIOUS BEHAVIOUR [None]
